FAERS Safety Report 8390125-0 (Version None)
Quarter: 2012Q2

REPORT INFORMATION
  Report Type: 
  Country: None (occurrence: None)
  Receive Date: 20120529
  Receipt Date: 20120522
  Transmission Date: 20120825
  Serious: Yes (Other)
  Sender: FDA-Public Use
  Company Number: PHHY2012MX039630

PATIENT
  Sex: Female

DRUGS (5)
  1. HIDROSMIN [Concomitant]
     Indication: ANGIOPATHY
     Dosage: 3 DF, EVERY 24 H
     Dates: start: 20010901
  2. ASPIRIN [Concomitant]
     Dosage: 1 DF, EVERY 24 H
     Dates: start: 20010901
  3. DIOVAN HCT [Suspect]
     Indication: HYPERTENSION
     Dosage: 1 DF (VALS 160 MG, HYDR 12.5 MG), EVERY 24 H
     Dates: start: 20100601, end: 20120422
  4. LIPITOR [Concomitant]
     Indication: BLOOD CHOLESTEROL INCREASED
     Dosage: 1 DF, EVERY 24 H
     Dates: start: 20010901
  5. LOVAZA [Concomitant]
     Dosage: 1 DF, EVERY 24 H
     Dates: start: 20010901

REACTIONS (5)
  - ANGINA PECTORIS [None]
  - STRESS [None]
  - EXERCISE TOLERANCE DECREASED [None]
  - BLOOD PRESSURE DECREASED [None]
  - CHEST DISCOMFORT [None]
